FAERS Safety Report 5748867-9 (Version None)
Quarter: 2008Q2

REPORT INFORMATION
  Report Type: 
  Country: None (occurrence: None)
  Receive Date: 20080522
  Receipt Date: 20080512
  Transmission Date: 20081010
  Serious: Yes (Hospitalization)
  Sender: FDA-Public Use
  Company Number: 8032560

PATIENT
  Sex: Female
  Weight: 45.45 kg

DRUGS (9)
  1. KEPPRA [Suspect]
     Indication: CONVULSION
     Dosage: 600 MG 2/D
  2. KEPPRA [Suspect]
     Indication: CONVULSION
     Dosage: 700 MG 2/D
  3. LEVOTHYROXINE SODIUM [Concomitant]
  4. BACTOBAN [Concomitant]
  5. OMEPRAZOLE [Concomitant]
  6. SCOPOLAMINE [Concomitant]
  7. TRIAMCINOLONE [Concomitant]
  8. ATROPINE [Concomitant]
  9. TYLENOL [Concomitant]

REACTIONS (2)
  - HYPOTHERMIA [None]
  - THROMBOCYTOPENIA [None]
